FAERS Safety Report 5200891-0 (Version None)
Quarter: 2007Q1

REPORT INFORMATION
  Report Type: 
  Country: None (occurrence: None)
  Receive Date: 20070108
  Receipt Date: 20061227
  Transmission Date: 20070707
  Serious: Yes (Hospitalization)
  Sender: FDA-Public Use
  Company Number: US-AMGEN-US199999

PATIENT
  Sex: Female

DRUGS (2)
  1. ENBREL [Suspect]
     Indication: RHEUMATOID ARTHRITIS
     Route: 058
     Dates: start: 20001101
  2. METHOTREXATE [Concomitant]
     Dates: start: 19960101

REACTIONS (4)
  - ATRIAL FIBRILLATION [None]
  - FALL [None]
  - RHEUMATOID ARTHRITIS [None]
  - SKIN LACERATION [None]
